FAERS Safety Report 10877701 (Version 3)
Quarter: 2015Q4

REPORT INFORMATION
  Report Type: Report from Study
  Country: IL (occurrence: IL)
  Receive Date: 20150302
  Receipt Date: 20151118
  Transmission Date: 20160304
  Serious: Yes (Hospitalization)
  Sender: FDA-Public Use
  Company Number: IL-SA-2015SA024108

PATIENT
  Age: 66 Year
  Sex: Female

DRUGS (1)
  1. RENVELA [Suspect]
     Active Substance: SEVELAMER CARBONATE
     Indication: CHRONIC KIDNEY DISEASE
     Route: 048
     Dates: start: 20130101

REACTIONS (3)
  - Chest pain [Recovering/Resolving]
  - Myocardial infarction [Recovered/Resolved]
  - Hyperphosphataemia [Unknown]

NARRATIVE: CASE EVENT DATE: 20150219
